FAERS Safety Report 14531820 (Version 1)
Quarter: 2018Q1

REPORT INFORMATION
  Report Type: Spontaneous
  Country: NL (occurrence: NL)
  Receive Date: 20180214
  Receipt Date: 20180214
  Transmission Date: 20180509
  Serious: Yes (Hospitalization)
  Sender: FDA-Public Use
  Company Number: NL-TEVA-2018-NL-855925

PATIENT
  Age: 76 Year
  Sex: Female
  Weight: 59 kg

DRUGS (5)
  1. ALENDRONINEZUUR TABLET, 70 MG (MILLIGRAM) [Suspect]
     Active Substance: ALENDRONIC ACID
     Indication: OSTEOPOROSIS POSTMENOPAUSAL
     Dosage: 1X PER WEEK 1
     Route: 065
     Dates: start: 20020101, end: 20170309
  2. ASCAL (CARBASALATE CALCIUM) [Concomitant]
     Active Substance: CARBASPIRIN CALCIUM
     Dosage: ONCE DAILY 1
  3. METOPROLOL 50 MG [Concomitant]
     Active Substance: METOPROLOL
     Dosage: ONCE DAILY 1
  4. AUGMENTIN INTRAVENEUS [Concomitant]
     Indication: SEPSIS
  5. VITAMIN D [Concomitant]
     Active Substance: CHOLECALCIFEROL
     Dosage: ONCE DAILY 2

REACTIONS (2)
  - Drug administration error [Recovered/Resolved with Sequelae]
  - Oesophagitis chemical [Recovered/Resolved with Sequelae]

NARRATIVE: CASE EVENT DATE: 20170308
